FAERS Safety Report 4558327-9 (Version None)
Quarter: 2005Q1

REPORT INFORMATION
  Report Type: 
  Country: None (occurrence: None)
  Receive Date: 20050103
  Receipt Date: 20041007
  Transmission Date: 20050727
  Serious: Yes (Other)
  Sender: FDA-Public Use
  Company Number: 2004UW21113

PATIENT
  Age: 55 Year
  Sex: Female
  Weight: 82.553 kg

DRUGS (4)
  1. CRESTOR [Suspect]
     Indication: BLOOD CHOLESTEROL INCREASED
     Dosage: 10 MG
  2. LEVOTHYROXINE [Concomitant]
  3. ANTIHYPERTENSIVES [Concomitant]
  4. MULTIVITAMIN [Concomitant]

REACTIONS (1)
  - TINNITUS [None]
